APPROVED DRUG PRODUCT: SUFENTANIL CITRATE
Active Ingredient: SUFENTANIL CITRATE
Strength: EQ 0.05MG BASE/ML
Dosage Form/Route: INJECTABLE;INJECTION
Application: A074406 | Product #001
Applicant: WATSON LABORATORIES INC
Approved: Dec 15, 1995 | RLD: No | RS: No | Type: DISCN